FAERS Safety Report 6844341-7 (Version None)
Quarter: 2010Q3

REPORT INFORMATION
  Report Type: 
  Country: None (occurrence: None)
  Receive Date: 20100712
  Receipt Date: 20100705
  Transmission Date: 20110219
  Serious: Yes (Other)
  Sender: FDA-Public Use
  Company Number: 014959

PATIENT
  Sex: Female

DRUGS (4)
  1. XYZAL [Suspect]
     Indication: NASOPHARYNGITIS
     Dosage: ORAL
     Route: 048
     Dates: start: 20100301, end: 20100404
  2. SPIFEN (SPIFEN) (NOT SPECIFIED) [Suspect]
     Indication: NASOPHARYNGITIS
     Dosage: ORAL
     Route: 048
     Dates: start: 20100301, end: 20100404
  3. DICLOFENAC (VOLTARENE EMUGEL) [Suspect]
     Dosage: 1% GEL CUTANEOUS
     Route: 003
     Dates: start: 20100301, end: 20100404
  4. BECLOMETHASONE DIPROPIONATE [Suspect]
     Indication: NASOPHARYNGITIS
     Dosage: ORAL
     Route: 048
     Dates: start: 20100301, end: 20100404

REACTIONS (12)
  - BACK PAIN [None]
  - BRONCHITIS [None]
  - EAR DISORDER [None]
  - FACE OEDEMA [None]
  - GASTROOESOPHAGEAL REFLUX DISEASE [None]
  - HEADACHE [None]
  - HEPATITIS [None]
  - LARYNGEAL DISORDER [None]
  - NASAL DISORDER [None]
  - NASOPHARYNGITIS [None]
  - POST PROCEDURAL COMPLICATION [None]
  - URTICARIA [None]
